FAERS Safety Report 12522398 (Version 1)
Quarter: 2016Q3

REPORT INFORMATION
  Report Type: Spontaneous
  Country: US (occurrence: US)
  Receive Date: 20160701
  Receipt Date: 20160701
  Transmission Date: 20161109
  Serious: Yes (Other)
  Sender: FDA-Public Use
  Company Number: US-TEVA-672356USA

PATIENT
  Age: 33 Year
  Sex: Female

DRUGS (1)
  1. ZECUITY [Suspect]
     Active Substance: SUMATRIPTAN SUCCINATE
     Indication: HEADACHE
     Route: 062
     Dates: start: 20160512, end: 20160512

REACTIONS (9)
  - Application site pain [Recovered/Resolved]
  - Application site discolouration [Recovered/Resolved]
  - Application site pruritus [Recovered/Resolved]
  - Application site erythema [Recovered/Resolved]
  - Application site inflammation [Recovered/Resolved]
  - Drug ineffective [Unknown]
  - Application site irritation [Recovered/Resolved]
  - Application site burn [Recovered/Resolved]
  - Application site urticaria [Recovered/Resolved]

NARRATIVE: CASE EVENT DATE: 20160512
